FAERS Safety Report 5062998-0 (Version None)
Quarter: 2006Q3

REPORT INFORMATION
  Report Type: 
  Country: None (occurrence: None)
  Receive Date: 20060724
  Receipt Date: 20060712
  Transmission Date: 20061208
  Serious: Yes (Hospitalization)
  Sender: FDA-Public Use
  Company Number: 227329

PATIENT
  Age: 62 Year
  Sex: Female
  Weight: 67.6 kg

DRUGS (16)
  1. AVASTIN [Suspect]
     Indication: NON-SMALL CELL LUNG CANCER
     Dosage: 1053 MG, Q3W, INTRAVENOUS
     Route: 042
     Dates: start: 20060518, end: 20060629
  2. ELOXATIN [Suspect]
     Indication: NON-SMALL CELL LUNG CANCER
     Dosage: 214 MG, Q3W, INTRAVENOUS
     Route: 042
     Dates: start: 20060518, end: 20060629
  3. ALIMTA [Suspect]
     Indication: NON-SMALL CELL LUNG CANCER
     Dosage: 890 MG, Q3W, INTRAVENOUS
     Route: 042
     Dates: start: 20060518, end: 20060629
  4. PREMARIN [Concomitant]
  5. WELLBUTRIN XL [Concomitant]
  6. LORTAB [Concomitant]
  7. OXYCONTIN [Concomitant]
  8. PRILOSEC [Concomitant]
  9. DECADRON [Concomitant]
  10. METAMUCIL (PSYLLIUM HUSK) [Concomitant]
  11. MIRALAX (POLYTHYLENE GLYCOL) [Concomitant]
  12. ASCORBIC ACID [Concomitant]
  13. CYANOCOBALAMIN [Concomitant]
  14. FOLIC ACID [Concomitant]
  15. SURFAK (UNITED STATES) (DOCUSATE CALCIUM) [Concomitant]
  16. PERI-COLACE [Concomitant]

REACTIONS (7)
  - BLOOD PRESSURE SYSTOLIC INCREASED [None]
  - CONSTIPATION [None]
  - FEBRILE NEUTROPENIA [None]
  - HEART RATE DECREASED [None]
  - NAUSEA [None]
  - VOMITING [None]
  - WHITE BLOOD CELL COUNT DECREASED [None]
